FAERS Safety Report 10131982 (Version 1)
Quarter: 2014Q2

REPORT INFORMATION
  Report Type: Spontaneous
  Country: US (occurrence: US)
  Receive Date: 20140428
  Receipt Date: 20140428
  Transmission Date: 20141212
  Serious: No
  Sender: FDA-Public Use
  Company Number: US-ASTRAZENECA-2014SE21208

PATIENT
  Age: 67 Year
  Sex: Female

DRUGS (2)
  1. FASLODEX [Suspect]
     Indication: BREAST CANCER METASTATIC
     Dosage: 500 MG, MONTHLY FOR 4 OR 5 CYCLES
     Route: 030
  2. HERCEPTIN [Suspect]

REACTIONS (2)
  - Ascites [Unknown]
  - Blood bilirubin increased [Unknown]
